FAERS Safety Report 5713720-3 (Version None)
Quarter: 2008Q2

REPORT INFORMATION
  Report Type: 
  Country: None (occurrence: None)
  Receive Date: 20080421
  Receipt Date: 20080414
  Transmission Date: 20081010
  Serious: Yes (Other)
  Sender: FDA-Public Use
  Company Number: A0722706A

PATIENT
  Age: 84 Year
  Sex: Female

DRUGS (1)
  1. UREA PEROXIDE [Suspect]
     Indication: CERUMEN REMOVAL
     Dosage: AURAL

REACTIONS (3)
  - DEAFNESS UNILATERAL [None]
  - DRUG ADMINISTRATION ERROR [None]
  - HYPOACUSIS [None]
